FAERS Safety Report 6518535-4 (Version None)
Quarter: 2009Q4

REPORT INFORMATION
  Report Type: 
  Country: None (occurrence: None)
  Receive Date: 20091226
  Receipt Date: 20091222
  Transmission Date: 20100525
  Serious: Yes (Death, Other)
  Sender: FDA-Public Use
  Company Number: FI-JNJFOC-20091206189

PATIENT
  Age: 66 Year
  Sex: Male

DRUGS (14)
  1. TAVANIC [Suspect]
     Indication: URINARY TRACT INFECTION
     Route: 042
     Dates: start: 20091019
  2. DITRIM DUPLO [Suspect]
     Indication: URINARY TRACT INFECTION
     Dosage: 1000 MG/320 MG
     Route: 048
     Dates: start: 20091017, end: 20091019
  3. FURESIS [Concomitant]
     Route: 065
  4. PLENDIL [Concomitant]
     Route: 065
  5. BISOPROLOL FUMARATE [Concomitant]
     Route: 065
  6. ORMOX [Concomitant]
     Route: 065
  7. KLEXANE [Concomitant]
     Route: 065
  8. TIOTROPIUM [Concomitant]
     Route: 065
  9. FLUTICASONE PROPIONATE [Concomitant]
     Route: 065
  10. SOMAC [Concomitant]
     Route: 065
  11. PERFALGAN [Concomitant]
     Route: 065
  12. OXYCODONE [Concomitant]
     Route: 065
  13. MEROPENEM [Concomitant]
     Route: 065
  14. DIFLUCAN [Concomitant]
     Route: 065

REACTIONS (9)
  - ARTERIOSCLEROSIS [None]
  - C-REACTIVE PROTEIN INCREASED [None]
  - CONDITION AGGRAVATED [None]
  - EMPHYSEMA [None]
  - HEPATIC NECROSIS [None]
  - SEPTIC SHOCK [None]
  - URINARY TRACT INFECTION [None]
  - VOLVULUS [None]
  - WHITE BLOOD CELL COUNT INCREASED [None]
